FAERS Safety Report 14289685 (Version 1)
Quarter: 2017Q4

REPORT INFORMATION
  Report Type: Spontaneous
  Country: US (occurrence: US)
  Receive Date: 20171214
  Receipt Date: 20171214
  Transmission Date: 20180321
  Serious: No
  Sender: FDA-Public Use
  Company Number: US-ENDO PHARMACEUTICALS INC-2017-001784

PATIENT
  Sex: Male
  Weight: 86.17 kg

DRUGS (1)
  1. TESTIM [Suspect]
     Active Substance: TESTOSTERONE
     Indication: BLOOD TESTOSTERONE DECREASED
     Dosage: UNK UNK, UNKNOWN
     Route: 061
     Dates: end: 201704

REACTIONS (3)
  - Product odour abnormal [Recovered/Resolved]
  - Malaise [Unknown]
  - Drug administered at inappropriate site [Recovered/Resolved]
